FAERS Safety Report 5162830-0 (Version None)
Quarter: 2006Q4

REPORT INFORMATION
  Report Type: 
  Country: None (occurrence: None)
  Receive Date: 20061201
  Receipt Date: 20001214
  Transmission Date: 20070319
  Serious: Yes (Hospitalization)
  Sender: FDA-Public Use
  Company Number: FR-GLAXOSMITHKLINE-B0094411A

PATIENT

DRUGS (10)
  1. STAVUDINE [Suspect]
     Indication: ANTIVIRAL PROPHYLAXIS
     Route: 048
     Dates: start: 20000908
  2. NEVIRAPINE [Suspect]
     Indication: ANTIVIRAL PROPHYLAXIS
     Dosage: 1UNIT PER DAY
     Route: 048
  3. RETROVIR [Suspect]
     Indication: ANTIVIRAL PROPHYLAXIS
     Route: 042
     Dates: start: 20000908, end: 20000908
  4. COMBIVIR [Suspect]
     Indication: HIV INFECTION
     Route: 048
  5. ZERIT [Suspect]
     Indication: HIV INFECTION
     Route: 048
  6. VIRACEPT [Suspect]
     Indication: HIV INFECTION
     Route: 048
  7. VIDEX [Suspect]
     Indication: HIV INFECTION
     Route: 048
  8. SUSTIVA [Suspect]
     Indication: HIV INFECTION
     Route: 048
  9. SALBUTAMOL [Concomitant]
     Route: 065
  10. SPASFON [Concomitant]
     Route: 065

REACTIONS (14)
  - BRONCHITIS [None]
  - CAESAREAN SECTION [None]
  - DEVELOPMENTAL DELAY [None]
  - DRUG EXPOSURE DURING PREGNANCY [None]
  - ECZEMA [None]
  - FOETAL GROWTH RETARDATION [None]
  - GASTROINTESTINAL DISORDER [None]
  - GASTROOESOPHAGEAL REFLUX DISEASE [None]
  - HAEMANGIOMA [None]
  - HYPERTRIGLYCERIDAEMIA [None]
  - LYMPHOPENIA [None]
  - NEUTROPENIA [None]
  - PLATELET COUNT INCREASED [None]
  - SLEEP DISORDER [None]
